FAERS Safety Report 7477616-1 (Version None)
Quarter: 2011Q2

REPORT INFORMATION
  Report Type: 
  Country: None (occurrence: None)
  Receive Date: 20110513
  Receipt Date: 20110504
  Transmission Date: 20111010
  Serious: Yes (Hospitalization, Other)
  Sender: FDA-Public Use
  Company Number: HK-GENZYME-POMP-1001539

PATIENT
  Sex: Female
  Weight: 15.4 kg

DRUGS (2)
  1. MYOZYME [Suspect]
     Indication: GLYCOGEN STORAGE DISEASE TYPE II
     Dosage: 40 MG/KG, Q2W
     Route: 042
     Dates: start: 20070201
  2. HYOSCINE [Concomitant]
     Indication: DROOLING
     Dosage: 0.75 MG, UNK
     Route: 062
     Dates: start: 20100801

REACTIONS (3)
  - STAPHYLOCOCCAL SEPSIS [None]
  - THERAPEUTIC RESPONSE DECREASED [None]
  - RESPIRATORY FAILURE [None]
